FAERS Safety Report 21018690 (Version 1)
Quarter: 2022Q2

REPORT INFORMATION
  Report Type: Spontaneous
  Country: JP (occurrence: JP)
  Receive Date: 20220628
  Receipt Date: 20220628
  Transmission Date: 20220720
  Serious: Yes (Death, Life-Threatening, Hospitalization, Other)
  Sender: FDA-Public Use
  Company Number: JP-ONO-2022JP007599

PATIENT
  Age: 72 Year
  Sex: Male
  Weight: 55.5 kg

DRUGS (12)
  1. OPDIVO [Suspect]
     Active Substance: NIVOLUMAB
     Indication: Non-small cell lung cancer recurrent
     Dosage: 240 MG
     Route: 041
     Dates: end: 20211019
  2. ANAMORELIN HYDROCHLORIDE [Suspect]
     Active Substance: ANAMORELIN HYDROCHLORIDE
     Indication: Cachexia
     Dosage: 100 MG, EVERYDAY
     Route: 048
     Dates: start: 20211007, end: 20211105
  3. TRANEXAMIC ACID [Concomitant]
     Active Substance: TRANEXAMIC ACID
     Dosage: 750 MG, EVERYDAY
     Route: 048
     Dates: end: 20211104
  4. MORPHINE HYDROCHLORIDE [Concomitant]
     Active Substance: MORPHINE HYDROCHLORIDE
     Dosage: 10 MG, EVERYDAY
     Route: 048
     Dates: end: 20211104
  5. CARBOCYSTEINE [Concomitant]
     Active Substance: CARBOCYSTEINE
     Dosage: 1500 MG, EVERYDAY
     Route: 048
     Dates: end: 20211104
  6. BROMHEXINE HYDROCHLORIDE [Concomitant]
     Active Substance: BROMHEXINE HYDROCHLORIDE
     Dosage: 6 MG, EVERYDAY
     Route: 055
     Dates: start: 20211013, end: 20211105
  7. PROCATEROL HYDROCHLORIDE [Concomitant]
     Active Substance: PROCATEROL HYDROCHLORIDE
     Dosage: 150 ?L, EVERYDAY
     Route: 055
     Dates: start: 20211014, end: 20211105
  8. MS CONTIN [Concomitant]
     Active Substance: MORPHINE SULFATE
     Dosage: 20 MG, EVERYDAY
     Route: 048
     Dates: start: 20211018, end: 20211105
  9. ADONA [Concomitant]
     Dosage: 90 MG, EVERYDAY
     Route: 048
     Dates: end: 20211104
  10. NAPROXEN SODIUM [Concomitant]
     Active Substance: NAPROXEN SODIUM
     Dosage: 300 MG, EVERYDAY
     Route: 048
     Dates: end: 20211104
  11. NEXIUM [Concomitant]
     Active Substance: ESOMEPRAZOLE MAGNESIUM
     Indication: Prophylaxis
     Dosage: 20 MG, EVERYDAY
     Route: 048
     Dates: end: 20211104
  12. PREDONINE [Concomitant]
     Active Substance: PREDNISOLONE
     Dosage: 25 MG, EVERYDAY
     Route: 048
     Dates: start: 20211013, end: 20211104

REACTIONS (2)
  - Malignant neoplasm progression [Fatal]
  - Bronchostenosis [Not Recovered/Not Resolved]

NARRATIVE: CASE EVENT DATE: 20211023
